FAERS Safety Report 11992754 (Version 1)
Quarter: 2016Q1

REPORT INFORMATION
  Report Type: Spontaneous
  Country: US (occurrence: US)
  Receive Date: 20160203
  Receipt Date: 20160203
  Transmission Date: 20160526
  Serious: Yes (Other)
  Sender: FDA-Public Use
  Company Number: US-UCBSA-2015024043

PATIENT
  Sex: Male

DRUGS (4)
  1. DEPAKOTE [Suspect]
     Active Substance: DIVALPROEX SODIUM
     Indication: SEIZURE
     Dosage: UNK
  2. PHENOBARB [Suspect]
     Active Substance: PHENOBARBITAL SODIUM
     Indication: SEIZURE
     Dosage: UNK
  3. ZONEGRAN [Suspect]
     Active Substance: ZONISAMIDE
     Indication: SEIZURE
     Dosage: UNK
  4. KEPPRA [Suspect]
     Active Substance: LEVETIRACETAM
     Indication: SEIZURE
     Dosage: UNK

REACTIONS (3)
  - Aggression [Unknown]
  - Adverse drug reaction [Unknown]
  - Drug ineffective [Unknown]
